FAERS Safety Report 23816901 (Version 5)
Quarter: 2024Q3

REPORT INFORMATION
  Report Type: Spontaneous
  Country: US (occurrence: US)
  Receive Date: 20240504
  Receipt Date: 20240924
  Transmission Date: 20241017
  Serious: Yes (Other)
  Sender: NOVARTIS
  Company Number: US-002147023-NVSC2024US094104

PATIENT
  Sex: Male

DRUGS (2)
  1. PLUVICTO [Suspect]
     Active Substance: LUTETIUM LU-177 VIPIVOTIDE TETRAXETAN
     Indication: Prostate cancer
     Dosage: 200 MCI
     Route: 041
     Dates: start: 20240207, end: 20240501
  2. PLUVICTO [Suspect]
     Active Substance: LUTETIUM LU-177 VIPIVOTIDE TETRAXETAN
     Dosage: UNK (THIRD DOSE)
     Route: 041

REACTIONS (6)
  - Prostate cancer [Unknown]
  - General physical health deterioration [Unknown]
  - Prostatic specific antigen decreased [Unknown]
  - Gait disturbance [Unknown]
  - Anal incontinence [Unknown]
  - Urinary incontinence [Unknown]
